FAERS Safety Report 22313307 (Version 1)
Quarter: 2023Q2

REPORT INFORMATION
  Report Type: Spontaneous
  Country: RU (occurrence: RU)
  Receive Date: 20230512
  Receipt Date: 20230512
  Transmission Date: 20230722
  Serious: Yes (Other)
  Sender: FDA-Public Use
  Company Number: RU-KOREA IPSEN Pharma-2023-10355

PATIENT
  Age: 63 Year
  Sex: Female
  Weight: 78 kg

DRUGS (7)
  1. DYSPORT [Suspect]
     Active Substance: ABOBOTULINUMTOXINA
     Indication: Blepharospasm
     Route: 058
     Dates: start: 20170403, end: 20170403
  2. XEOMIN [Suspect]
     Active Substance: INCOBOTULINUMTOXINA
     Indication: Blepharospasm
     Route: 058
     Dates: start: 20171225, end: 20171225
  3. XEOMIN [Suspect]
     Active Substance: INCOBOTULINUMTOXINA
     Route: 058
     Dates: start: 20180326, end: 20180326
  4. XEOMIN [Suspect]
     Active Substance: INCOBOTULINUMTOXINA
     Route: 058
     Dates: start: 20180803, end: 20180803
  5. XEOMIN [Suspect]
     Active Substance: INCOBOTULINUMTOXINA
     Route: 058
     Dates: start: 20181005, end: 20181005
  6. XEOMIN [Suspect]
     Active Substance: INCOBOTULINUMTOXINA
     Route: 058
     Dates: start: 20190307, end: 20190307
  7. XEOMIN [Suspect]
     Active Substance: INCOBOTULINUMTOXINA
     Route: 058
     Dates: start: 20190930, end: 20190930

REACTIONS (3)
  - Dizziness [Recovered/Resolved]
  - Headache [Recovered/Resolved]
  - Drug ineffective [Unknown]
